FAERS Safety Report 21492846 (Version 1)
Quarter: 2022Q4

REPORT INFORMATION
  Report Type: Spontaneous
  Country: JP (occurrence: JP)
  Receive Date: 20221021
  Receipt Date: 20221021
  Transmission Date: 20230113
  Serious: Yes (Other)
  Sender: FDA-Public Use
  Company Number: JP-PFIZER INC-202201244727

PATIENT

DRUGS (1)
  1. HALCION [Suspect]
     Active Substance: TRIAZOLAM
     Route: 048

REACTIONS (2)
  - Sphincter of Oddi dysfunction [Unknown]
  - Cholangitis [Unknown]
